FAERS Safety Report 5279505-X (Version None)
Quarter: 2007Q1

REPORT INFORMATION
  Report Type: 
  Country: None (occurrence: None)
  Receive Date: 20070328
  Receipt Date: 20070319
  Transmission Date: 20070707
  Serious: Yes (Other)
  Sender: FDA-Public Use
  Company Number: US-PFIZER INC-2006118522

PATIENT
  Sex: Female
  Weight: 58.1 kg

DRUGS (3)
  1. LYRICA [Suspect]
     Indication: NEURALGIA
     Dates: start: 20060301, end: 20060401
  2. LYRICA [Suspect]
     Indication: RADICULOPATHY
  3. CELEBREX [Suspect]

REACTIONS (11)
  - ADVERSE EVENT [None]
  - ARTHRITIS [None]
  - DIABETES MELLITUS [None]
  - DRUG HYPERSENSITIVITY [None]
  - DRUG INEFFECTIVE [None]
  - DYSKINESIA [None]
  - HIP ARTHROPLASTY [None]
  - LIMB DISCOMFORT [None]
  - PAIN [None]
  - PARAESTHESIA [None]
  - SENSORY DISTURBANCE [None]
